FAERS Safety Report 14914817 (Version 2)
Quarter: 2018Q2

REPORT INFORMATION
  Report Type: Spontaneous
  Country: UY (occurrence: UY)
  Receive Date: 20180518
  Receipt Date: 20180614
  Transmission Date: 20180711
  Serious: Yes (Hospitalization, Other)
  Sender: FDA-Public Use
  Company Number: PHHY2018UY009417

PATIENT
  Age: 35 Year
  Sex: Female

DRUGS (1)
  1. GILENYA [Suspect]
     Active Substance: FINGOLIMOD HYDROCHLORIDE
     Indication: RELAPSING-REMITTING MULTIPLE SCLEROSIS
     Dosage: 0.5 MG, QD
     Route: 048
     Dates: start: 201802, end: 20180504

REACTIONS (9)
  - Limb injury [Recovering/Resolving]
  - Ulcer [Recovering/Resolving]
  - Infection [Unknown]
  - Skin lesion [Recovering/Resolving]
  - Lymphopenia [Unknown]
  - Erythema [Recovering/Resolving]
  - Staphylococcal infection [Recovering/Resolving]
  - Inflammation [Recovering/Resolving]
  - Lymphocyte count increased [Unknown]

NARRATIVE: CASE EVENT DATE: 20180504
